FAERS Safety Report 8129362-9 (Version None)
Quarter: 2012Q1

REPORT INFORMATION
  Report Type: 
  Country: None (occurrence: None)
  Receive Date: 20120210
  Receipt Date: 20120202
  Transmission Date: 20120608
  Serious: Yes (Disabling)
  Sender: FDA-Public Use
  Company Number: CA-MERCK-1111USA01065

PATIENT
  Age: 64 Year
  Sex: Male
  Weight: 86 kg

DRUGS (7)
  1. HYDROMORPHONE [Concomitant]
     Route: 065
     Dates: start: 20110414
  2. CLONAZEPAM [Concomitant]
     Route: 065
  3. SINEMET CR [Suspect]
     Route: 048
     Dates: start: 20100701, end: 20111001
  4. HYDROMORPHONE [Concomitant]
     Route: 065
  5. CLONAZEPAM [Concomitant]
     Route: 065
     Dates: start: 20110228
  6. ZOPICLONE [Concomitant]
     Indication: SLEEP DISORDER
     Route: 065
     Dates: start: 20100812
  7. SINEMET CR [Suspect]
     Indication: PARKINSON'S DISEASE
     Route: 048
     Dates: start: 20100719, end: 20111019

REACTIONS (2)
  - DRUG INEFFECTIVE [None]
  - ABDOMINAL DISCOMFORT [None]
